FAERS Safety Report 8506137-X (Version None)
Quarter: 2012Q3

REPORT INFORMATION
  Report Type: 
  Country: None (occurrence: None)
  Receive Date: 20120712
  Receipt Date: 20120704
  Transmission Date: 20120928
  Serious: Yes (Hospitalization)
  Sender: FDA-Public Use
  Company Number: KR-ABBOTT-12P-090-0953453-00

PATIENT
  Age: 22 Year
  Sex: Female
  Weight: 36.5 kg

DRUGS (28)
  1. IRCODON [Concomitant]
     Indication: CROHN'S DISEASE
     Route: 048
     Dates: start: 20110422
  2. NISOLONE [Concomitant]
     Route: 048
     Dates: start: 20110621
  3. ULTRACET [Concomitant]
     Indication: CROHN'S DISEASE
     Route: 048
     Dates: start: 20110615, end: 20110618
  4. BESTIDINE [Concomitant]
     Indication: CROHN'S DISEASE
     Route: 048
     Dates: start: 20110622, end: 20110622
  5. HUMIRA [Suspect]
     Indication: CROHN'S DISEASE
     Dosage: INDUCTION
     Route: 058
     Dates: start: 20110422
  6. ACETAMINOPHEN [Concomitant]
     Indication: CROHN'S DISEASE
     Route: 048
     Dates: start: 20110422, end: 20110422
  7. AMIRAL [Concomitant]
     Indication: CROHN'S DISEASE
     Route: 042
     Dates: start: 20110617, end: 20110617
  8. ZOLPIDEM TARTRATE [Concomitant]
     Indication: PROPHYLAXIS
  9. CORTICAP [Concomitant]
     Indication: CROHN'S DISEASE
     Route: 042
     Dates: start: 20110422, end: 20110422
  10. NISOLONE [Concomitant]
     Indication: CROHN'S DISEASE
     Route: 048
     Dates: start: 20110506, end: 20110601
  11. ZOLPIDEM TARTRATE [Concomitant]
     Indication: INSOMNIA
     Route: 048
     Dates: start: 20110706
  12. HUMIRA [Suspect]
     Route: 058
  13. ACETAMINOPHEN [Concomitant]
     Route: 048
     Dates: start: 20110426, end: 20110426
  14. ACETAMINOPHEN [Concomitant]
     Route: 048
     Dates: start: 20110506, end: 20110509
  15. MUCOSTEN [Concomitant]
     Indication: ANTITUSSIVE THERAPY
     Dosage: 10% 3ML
     Route: 042
     Dates: start: 20110614, end: 20110614
  16. ANTIBIO [Concomitant]
     Indication: CROHN'S DISEASE
     Route: 048
     Dates: start: 20110618, end: 20110618
  17. PREPENEM [Concomitant]
     Indication: CROHN'S DISEASE
     Dosage: 4 VIALS DAILY
     Route: 042
     Dates: start: 20110709, end: 20110716
  18. XYREN [Concomitant]
     Indication: INSOMNIA
     Route: 048
     Dates: start: 20110712, end: 20110712
  19. CITOPCIN [Concomitant]
     Indication: CROHN'S DISEASE
     Route: 042
     Dates: start: 20110614, end: 20110618
  20. PANTOLINE [Concomitant]
     Indication: CROHN'S DISEASE
     Route: 048
     Dates: start: 20110422
  21. IMMUTHERA [Concomitant]
     Indication: CROHN'S DISEASE
     Route: 048
     Dates: start: 20110422
  22. MUCOSTEN [Concomitant]
     Indication: PRODUCTIVE COUGH
  23. SUCRALFATE [Concomitant]
     Indication: CROHN'S DISEASE
     Dosage: 1 PACKAGE DAILY, 1G/15ML
     Route: 065
     Dates: start: 20110622, end: 20110708
  24. GLAMIN [Concomitant]
     Indication: CROHN'S DISEASE
     Route: 042
     Dates: start: 20110710, end: 20110710
  25. KETORAC [Concomitant]
     Indication: CROHN'S DISEASE
     Route: 042
     Dates: start: 20110622, end: 20110622
  26. LAMINA-G [Concomitant]
     Indication: CROHN'S DISEASE
     Dosage: 1 PACKAGE DAILY
     Route: 065
     Dates: start: 20110623
  27. XYREN [Concomitant]
     Indication: PROPHYLAXIS
  28. DAEWOO FOLIC ACID [Concomitant]
     Indication: CROHN'S DISEASE
     Route: 048
     Dates: start: 20110422

REACTIONS (2)
  - PYREXIA [None]
  - ASTHENIA [None]
